FAERS Safety Report 6053316-X (Version None)
Quarter: 2009Q1

REPORT INFORMATION
  Report Type: 
  Country: None (occurrence: None)
  Receive Date: 20090127
  Receipt Date: 20090122
  Transmission Date: 20090719
  Serious: Yes (Hospitalization)
  Sender: FDA-Public Use
  Company Number: A0765149A

PATIENT
  Age: 30 Year
  Sex: Female
  Weight: 55 kg

DRUGS (1)
  1. AEROLIN [Suspect]
     Indication: ASTHMA
     Dosage: 3PUFF AS REQUIRED
     Route: 055
     Dates: start: 20070101

REACTIONS (5)
  - ASTHMA [None]
  - DYSPNOEA [None]
  - EXPIRED DRUG ADMINISTERED [None]
  - FATIGUE [None]
  - TACHYCARDIA [None]
